FAERS Safety Report 23899523 (Version 2)
Quarter: 2024Q3

REPORT INFORMATION
  Report Type: Spontaneous
  Country: US (occurrence: US)
  Receive Date: 20240526
  Receipt Date: 20240709
  Transmission Date: 20241016
  Serious: No
  Sender: ROCHE
  Company Number: US-ROCHE-3380718

PATIENT
  Age: 62 Year
  Sex: Female

DRUGS (1)
  1. ACTEMRA [Suspect]
     Active Substance: TOCILIZUMAB
     Indication: Rheumatoid arthritis
     Dosage: FREQUENCY TEXT:OTHER
     Route: 058

REACTIONS (8)
  - Musculoskeletal stiffness [Unknown]
  - Headache [Unknown]
  - Injection site pain [Unknown]
  - Vitamin D decreased [Unknown]
  - Pain in extremity [Unknown]
  - Arthralgia [Unknown]
  - Balance disorder [Unknown]
  - Fall [Unknown]
